FAERS Safety Report 10025720 (Version 1)
Quarter: 2014Q1

REPORT INFORMATION
  Report Type: Spontaneous
  Country: IR (occurrence: None)
  Receive Date: 20140314
  Receipt Date: 20140314
  Transmission Date: 20141002
  Serious: Yes (Other)
  Sender: FDA-Public Use
  Company Number: NSR_01527_2014

PATIENT
  Age: 21 Year
  Sex: Male

DRUGS (2)
  1. TRAMADOL [Suspect]
     Indication: PRODUCT USED FOR UNKNOWN INDICATION
     Dosage: NOT THE PRESCRIBED DOSE
  2. METHADONE [Suspect]
     Indication: PRODUCT USED FOR UNKNOWN INDICATION
     Dosage: NOT THE PRESCRIBED DOSE

REACTIONS (4)
  - Loss of consciousness [None]
  - Grand mal convulsion [None]
  - Joint dislocation [None]
  - Toxicity to various agents [None]
